FAERS Safety Report 23223432 (Version 3)
Quarter: 2023Q4

REPORT INFORMATION
  Report Type: Other
  Country: FR (occurrence: FR)
  Receive Date: 20231123
  Receipt Date: 20231204
  Transmission Date: 20240109
  Serious: Yes (Hospitalization, Other)
  Sender: FDA-Public Use
  Company Number: None

PATIENT
  Age: 52 Year
  Sex: Female

DRUGS (1)
  1. XOSPATA [Suspect]
     Active Substance: GILTERITINIB
     Indication: Acute myeloid leukaemia
     Route: 048
     Dates: start: 20230403, end: 20230616

REACTIONS (3)
  - Deep vein thrombosis [Recovering/Resolving]
  - Pulmonary microemboli [Unknown]
  - Underdose [Unknown]

NARRATIVE: CASE EVENT DATE: 20230403
